FAERS Safety Report 5258325-6 (Version None)
Quarter: 2007Q1

REPORT INFORMATION
  Report Type: 
  Country: None (occurrence: None)
  Receive Date: 20070308
  Receipt Date: 20070228
  Transmission Date: 20070707
  Serious: Yes (Hospitalization)
  Sender: FDA-Public Use
  Company Number: AT-JNJFOC-20070206520

PATIENT
  Sex: Female
  Weight: 33.57 kg

DRUGS (4)
  1. DURAGESIC-100 [Suspect]
     Indication: PAIN MANAGEMENT
     Route: 062
  2. DICLO [Concomitant]
     Indication: PAIN
     Route: 065
  3. NEXIUM [Concomitant]
     Indication: GASTROINTESTINAL DISORDER THERAPY
     Route: 065
  4. LAEVOLAC [Concomitant]
     Indication: CONSTIPATION
     Route: 065

REACTIONS (1)
  - SURGERY [None]
